FAERS Safety Report 10881904 (Version 1)
Quarter: 2015Q1

REPORT INFORMATION
  Report Type: Spontaneous
  Country: US (occurrence: None)
  Receive Date: 20150226
  Receipt Date: 20150226
  Transmission Date: 20150721
  Serious: No
  Sender: FDA-Public Use
  Company Number: None

PATIENT
  Age: 10 Year
  Sex: Female

DRUGS (1)
  1. LUPRON DEPOT-PED [Suspect]
     Active Substance: LEUPROLIDE ACETATE
     Indication: PRECOCIOUS PUBERTY
     Dosage: 15MG  Q25-28 DAYS  IM
     Route: 030
     Dates: start: 20141202, end: 20150224

REACTIONS (2)
  - Post procedural complication [None]
  - Movement disorder [None]

NARRATIVE: CASE EVENT DATE: 20150224
